FAERS Safety Report 17599916 (Version 2)
Quarter: 2020Q2

REPORT INFORMATION
  Report Type: Spontaneous
  Country: IT (occurrence: IT)
  Receive Date: 20200330
  Receipt Date: 20200407
  Transmission Date: 20200713
  Serious: Yes (Other)
  Sender: FDA-Public Use
  Company Number: IT-PFIZER INC-2020132111

PATIENT
  Age: 72 Year
  Sex: Male
  Weight: 90 kg

DRUGS (2)
  1. LIXIANA [Suspect]
     Active Substance: EDOXABAN TOSYLATE
     Indication: ATRIAL FIBRILLATION
     Dosage: 60 MG, QD
     Route: 048
     Dates: start: 20170101, end: 20200117
  2. TRIATEC (RAMIPRIL) [Suspect]
     Active Substance: RAMIPRIL
     Dosage: UNK
     Route: 065

REACTIONS (1)
  - Ecchymosis [Unknown]

NARRATIVE: CASE EVENT DATE: 20191221
